FAERS Safety Report 4572204-9 (Version None)
Quarter: 2005Q1

REPORT INFORMATION
  Report Type: 
  Country: None (occurrence: None)
  Receive Date: 20050203
  Receipt Date: 20050119
  Transmission Date: 20050727
  Serious: Yes (Hospitalization)
  Sender: FDA-Public Use
  Company Number: SP-2005-002020

PATIENT
  Age: 53 Year
  Sex: Male

DRUGS (2)
  1. OLMETEC [Suspect]
     Indication: HYPERTENSION
     Dosage: 20 MG QD PO
     Route: 048
     Dates: start: 20041129, end: 20041202
  2. ERCEFURYL [Suspect]
     Dates: start: 20041129, end: 20041202

REACTIONS (2)
  - BRAIN SCAN ABNORMAL [None]
  - RETROGRADE AMNESIA [None]
